FAERS Safety Report 7070909-1 (Version None)
Quarter: 2010Q4

REPORT INFORMATION
  Report Type: 
  Country: None (occurrence: None)
  Receive Date: 20101029
  Receipt Date: 20101018
  Transmission Date: 20110411
  Serious: Yes (Hospitalization)
  Sender: FDA-Public Use
  Company Number: PHHY2010CN69232

PATIENT
  Sex: Female

DRUGS (5)
  1. ACLASTA [Suspect]
     Indication: ARTHRALGIA
     Dosage: 5 MG, ONCE A YEAR
     Dates: start: 20100428
  2. VITAMIN D [Concomitant]
  3. LOXONIN [Concomitant]
  4. FAMOTIDINE [Concomitant]
  5. CALCIUM [Concomitant]

REACTIONS (3)
  - LEUKOPENIA [None]
  - RED BLOOD CELL COUNT DECREASED [None]
  - THROMBOCYTOPENIA [None]
